FAERS Safety Report 8294817-3 (Version None)
Quarter: 2012Q2

REPORT INFORMATION
  Report Type: 
  Country: None (occurrence: None)
  Receive Date: 20120418
  Receipt Date: 20120412
  Transmission Date: 20120825
  Serious: Yes (Hospitalization, Other)
  Sender: FDA-Public Use
  Company Number: US-AMGEN-USASP2012023316

PATIENT
  Age: 73 Year
  Sex: Female

DRUGS (3)
  1. ENBREL [Suspect]
     Indication: PRODUCT USED FOR UNKNOWN INDICATION
     Dosage: 50 MG, QWK
     Dates: start: 20110101
  2. BONIVA [Concomitant]
  3. FORTEO [Concomitant]
     Dosage: UNK

REACTIONS (5)
  - MENINGITIS [None]
  - MOBILITY DECREASED [None]
  - PAIN IN EXTREMITY [None]
  - FALL [None]
  - FEMUR FRACTURE [None]
